FAERS Safety Report 4556651-7 (Version None)
Quarter: 2005Q1

REPORT INFORMATION
  Report Type: 
  Country: None (occurrence: None)
  Receive Date: 20050118
  Receipt Date: 20050103
  Transmission Date: 20050727
  Serious: Yes (Hospitalization, Other)
  Sender: FDA-Public Use
  Company Number: 2004117273

PATIENT
  Age: 31 Year
  Sex: Female

DRUGS (4)
  1. PREDNISOLONE [Suspect]
     Indication: NEURITIS
     Dosage: 40 MG (40 MG, 1 IN 1 D)
  2. DAPSONE [Suspect]
     Indication: TUBERCULOID LEPROSY
     Dosage: 100 MG (100 MG, 1 IN 1 D)
  3. RIFAMPICIN [Suspect]
     Indication: TUBERCULOID LEPROSY
     Dosage: 600 MG (600 MG, 1 IN 1 D)
     Dates: start: 20000101
  4. CYCLOSPORINE [Suspect]
     Indication: TUBERCULOID LEPROSY
     Dosage: 100 MG (100 MG, 1 IN 1 D)
     Dates: start: 20000101

REACTIONS (9)
  - ABSCESS [None]
  - ANAEMIA [None]
  - DIARRHOEA [None]
  - DUODENAL ULCER PERFORATION [None]
  - DUODENITIS [None]
  - HAEMOLYSIS [None]
  - HELICOBACTER PYLORI IDENTIFICATION TEST POSITIVE [None]
  - JAUNDICE [None]
  - RENAL FAILURE ACUTE [None]
